FAERS Safety Report 5570796-4 (Version None)
Quarter: 2007Q4

REPORT INFORMATION
  Report Type: 
  Country: None (occurrence: None)
  Receive Date: 20071221
  Receipt Date: 20071214
  Transmission Date: 20080405
  Serious: Yes (Other)
  Sender: FDA-Public Use
  Company Number: US-BAYER-200714179BCC

PATIENT
  Age: 60 Year
  Sex: Male
  Weight: 134 kg

DRUGS (3)
  1. ALEVE [Suspect]
     Indication: ARTHRALGIA
     Dosage: TOTAL DAILY DOSE: 880 MG  UNIT DOSE: 220 MG
     Route: 048
  2. RAMIPRIL [Concomitant]
  3. UROXATRAL [Concomitant]

REACTIONS (1)
  - BLOOD PRESSURE INCREASED [None]
